FAERS Safety Report 4952626-4 (Version None)
Quarter: 2006Q1

REPORT INFORMATION
  Report Type: 
  Country: None (occurrence: None)
  Receive Date: 20060320
  Receipt Date: 20060310
  Transmission Date: 20060701
  Serious: Yes (Hospitalization)
  Sender: FDA-Public Use
  Company Number: SUS1-2006-00251

PATIENT
  Age: 19 Year
  Sex: Male

DRUGS (6)
  1. ADDERALL 10 [Suspect]
     Indication: ATTENTION DEFICIT/HYPERACTIVITY DISORDER
     Dosage: 10 MG, 2X/DAY:  BID,
     Dates: start: 20050101, end: 20060201
  2. GENERIC AMPHETAMINE (GENERIC AMPHETAMINE) [Suspect]
     Indication: ATTENTION DEFICIT/HYPERACTIVITY DISORDER
     Dosage: 10 MG, 2X/DAY:  BID,
     Dates: start: 20060201, end: 20060201
  3. LAMICTAL [Concomitant]
  4. SUDAFED /00076302/ [Concomitant]
  5. OVER THE COUNTER COLD MEDICATIONS [Concomitant]
  6. MARIJUANA (CANNABIS SATIVA) [Concomitant]

REACTIONS (5)
  - CHEST PAIN [None]
  - CONTRAST MEDIA REACTION [None]
  - DRUG ABUSER [None]
  - MYOCARDIAL INFARCTION [None]
  - POST PROCEDURAL COMPLICATION [None]
